FAERS Safety Report 25902985 (Version 1)
Quarter: 2025Q4

REPORT INFORMATION
  Report Type: Spontaneous
  Country: US (occurrence: None)
  Receive Date: 20251009
  Receipt Date: 20251009
  Transmission Date: 20260117
  Serious: Yes (Hospitalization)
  Sender: FDA-CTU
  Company Number: None

PATIENT
  Age: 78 Year
  Sex: Female
  Weight: 85 kg

DRUGS (6)
  1. DOCETAXEL [Suspect]
     Active Substance: DOCETAXEL
     Indication: Breast cancer female
     Dosage: OTHER FREQUENCY : ONCE;?
     Route: 042
     Dates: start: 20250925, end: 20250925
  2. Dexamethasone 12 mg IV [Concomitant]
     Dates: start: 20250925, end: 20250925
  3. DIPHENHYDRAMINE HYDROCHLORIDE [Concomitant]
     Active Substance: DIPHENHYDRAMINE HYDROCHLORIDE
     Dates: start: 20250925, end: 20250925
  4. Famotidine 20 mg IV [Concomitant]
     Dates: start: 20250925, end: 20250925
  5. Methylprednisolone sodium succinate 125 mg IV push [Concomitant]
     Dates: start: 20250925, end: 20250925
  6. Palonosetron 0.25 mg IV [Concomitant]
     Dates: start: 20250925, end: 20250925

REACTIONS (1)
  - Anaphylactic reaction [None]

NARRATIVE: CASE EVENT DATE: 20250925
